FAERS Safety Report 7832444-X (Version None)
Quarter: 2011Q4

REPORT INFORMATION
  Report Type: 
  Country: None (occurrence: None)
  Receive Date: 20111023
  Receipt Date: 20110922
  Transmission Date: 20120403
  Serious: Yes (Disabling, Other)
  Sender: FDA-Public Use
  Company Number: PHHY2011BR84951

PATIENT
  Age: 69 Year
  Sex: Male
  Weight: 85 kg

DRUGS (5)
  1. DIOVAN HCT [Suspect]
     Dosage: 1 DF, QD (320 MG VALS AND 12.5 MG HYDR)
  2. AMLODIPINE [Suspect]
     Dosage: 10 MG, QD
  3. AMLODIPINE [Suspect]
     Dosage: 5 MG, QD
  4. DIOVAN HCT [Suspect]
     Indication: HYPERTENSION
     Dosage: 1 DF, QD (160 MG VALS AND 12.5 MG AMLO)
  5. ATENOLOL [Suspect]
     Dosage: 25 MG, QD

REACTIONS (3)
  - INTERVERTEBRAL DISC PROTRUSION [None]
  - GAIT DISTURBANCE [None]
  - OEDEMA [None]
